FAERS Safety Report 9999188 (Version 2)
Quarter: 2014Q4

REPORT INFORMATION
  Report Type: Spontaneous
  Country: US (occurrence: US)
  Receive Date: 20140312
  Receipt Date: 20141226
  Transmission Date: 20150529
  Serious: Yes (Hospitalization)
  Sender: FDA-Public Use
  Company Number: US-SA-2014SA029411

PATIENT
  Age: 41 Year
  Sex: Female
  Weight: 75 kg

DRUGS (6)
  1. VENOFER [Suspect]
     Active Substance: IRON SUCROSE
     Indication: NEPHROGENIC ANAEMIA
     Route: 065
  2. EPOGEN [Suspect]
     Active Substance: ERYTHROPOIETIN
     Dosage: DOSE:2000 UNIT(S)
     Route: 042
     Dates: start: 20131217
  3. NORMAL SALINE [Concomitant]
     Active Substance: SODIUM CHLORIDE
  4. HECTOROL [Suspect]
     Active Substance: DOXERCALCIFEROL
     Route: 042
     Dates: start: 20131217
  5. ELECTROLYTES NOS/GLUCOSE [Concomitant]
  6. VENOFER [Suspect]
     Active Substance: IRON SUCROSE
     Indication: NEPHROGENIC ANAEMIA
     Route: 042
     Dates: start: 20131217

REACTIONS (9)
  - Hypotension [Recovered/Resolved]
  - Altered state of consciousness [Recovered/Resolved]
  - Lack of spontaneous speech [Recovered/Resolved]
  - Staring [Recovered/Resolved]
  - Blood glucose increased [Unknown]
  - Discomfort [Recovered/Resolved]
  - Hypertension [Unknown]
  - Syncope [Recovered/Resolved]
  - Loss of consciousness [Recovered/Resolved]

NARRATIVE: CASE EVENT DATE: 20131217
